FAERS Safety Report 12582081 (Version 2)
Quarter: 2016Q3

REPORT INFORMATION
  Report Type: Spontaneous
  Country: FR (occurrence: FR)
  Receive Date: 20160722
  Receipt Date: 20160810
  Transmission Date: 20161109
  Serious: Yes (Death, Life-Threatening)
  Sender: FDA-Public Use
  Company Number: FR-ROCHE-1796719

PATIENT
  Age: 80 Year
  Sex: Female

DRUGS (13)
  1. BACTRIM [Concomitant]
     Active Substance: SULFAMETHOXAZOLE\TRIMETHOPRIM
     Route: 048
  2. PREDNISOLONE. [Concomitant]
     Active Substance: PREDNISOLONE
     Indication: DIFFUSE LARGE B-CELL LYMPHOMA
     Dosage: LAST CYCLE OF CHEMOTHERAPY WAS ADMINISTRATED IN APR/2016.?8 CYCLES
     Route: 048
     Dates: start: 201511, end: 201604
  3. ZELITREX [Concomitant]
     Active Substance: VALACYCLOVIR HYDROCHLORIDE
     Route: 048
  4. APIXABAN [Concomitant]
     Active Substance: APIXABAN
     Route: 065
  5. MABTHERA [Suspect]
     Active Substance: RITUXIMAB
     Indication: DIFFUSE LARGE B-CELL LYMPHOMA
     Dosage: LAST CYCLE OF CHEMOTHERAPY WAS ADMINISTRATED IN APR/2016.?8 CYCLES
     Route: 041
     Dates: start: 201511, end: 201604
  6. ONCOVIN [Concomitant]
     Active Substance: VINCRISTINE SULFATE
     Indication: DIFFUSE LARGE B-CELL LYMPHOMA
     Dosage: LAST CYCLE OF CHEMOTHERAPY WAS ADMINISTRATED IN APR/2016.?8 CYCLES
     Route: 041
     Dates: start: 201511, end: 201604
  7. AMLODIPINE [Concomitant]
     Active Substance: AMLODIPINE BESYLATE
     Route: 048
  8. PARACETAMOL [Concomitant]
     Active Substance: ACETAMINOPHEN
     Route: 048
  9. ESOMEPRAZOLE [Concomitant]
     Active Substance: ESOMEPRAZOLE
     Route: 048
  10. ENDOXAN [Concomitant]
     Active Substance: CYCLOPHOSPHAMIDE
     Indication: DIFFUSE LARGE B-CELL LYMPHOMA
     Dosage: LAST CYCLE OF CHEMOTHERAPY WAS ADMINISTRATED IN APR/2016.?8 CYCLES
     Route: 041
     Dates: start: 201511, end: 201604
  11. ADRIBLASTINE [Concomitant]
     Active Substance: DOXORUBICIN
     Indication: DIFFUSE LARGE B-CELL LYMPHOMA
     Dosage: LAST CYCLE OF CHEMOTHERAPY WAS ADMINISTRATED IN APR/2016.?8 CYCLES
     Route: 041
     Dates: start: 201511, end: 201604
  12. MACROGOL [Concomitant]
     Active Substance: POLYETHYLENE GLYCOLS
     Route: 048
  13. STILNOX [Concomitant]
     Active Substance: ZOLPIDEM TARTRATE

REACTIONS (10)
  - Dysarthria [Not Recovered/Not Resolved]
  - Orthostatic hypotension [Not Recovered/Not Resolved]
  - Oral fungal infection [Unknown]
  - Psychomotor skills impaired [Not Recovered/Not Resolved]
  - Altered state of consciousness [Not Recovered/Not Resolved]
  - General physical health deterioration [Unknown]
  - Balance disorder [Not Recovered/Not Resolved]
  - Progressive multifocal leukoencephalopathy [Fatal]
  - Asthenia [Not Recovered/Not Resolved]
  - Dysphagia [Not Recovered/Not Resolved]

NARRATIVE: CASE EVENT DATE: 20160520
